FAERS Safety Report 7953900-X (Version None)
Quarter: 2011Q4

REPORT INFORMATION
  Report Type: 
  Country: None (occurrence: None)
  Receive Date: 20111202
  Receipt Date: 20111124
  Transmission Date: 20120403
  Serious: Yes (Hospitalization)
  Sender: FDA-Public Use
  Company Number: DE-BRISTOL-MYERS SQUIBB COMPANY-16248544

PATIENT
  Age: 50 Year
  Sex: Female

DRUGS (9)
  1. TOCILIZUMAB [Suspect]
     Dates: start: 20101001, end: 20101001
  2. MABTHERA [Suspect]
     Dosage: CUMULATIVE DOSE:1000MG
     Route: 042
     Dates: start: 20110126
  3. PREDNISOLONE [Concomitant]
  4. ATACAND [Concomitant]
  5. APIDRA [Concomitant]
     Dosage: 1DF: 40-30-40 UNITS NOS
  6. ACETYLSALICYLIC ACID SRT [Concomitant]
     Dosage: 1DF:100 UNITS NOS
  7. INSULIN [Concomitant]
     Dosage: 1DF:46UNITS NOS
  8. ORENCIA [Suspect]
     Indication: RHEUMATOID ARTHRITIS
     Dates: end: 20101001
  9. HUMIRA [Suspect]
     Dates: start: 20100801, end: 20101001

REACTIONS (1)
  - HEPATIC STEATOSIS [None]
